FAERS Safety Report 17833079 (Version 3)
Quarter: 2022Q2

REPORT INFORMATION
  Report Type: Spontaneous
  Country: US (occurrence: US)
  Receive Date: 20200528
  Receipt Date: 20220511
  Transmission Date: 20220720
  Serious: Yes (Other)
  Sender: FDA-Public Use
  Company Number: US-UCBSA-2019052858

PATIENT
  Age: 26 Year
  Sex: Male

DRUGS (2)
  1. CIMZIA [Suspect]
     Active Substance: CERTOLIZUMAB PEGOL
     Indication: Crohn^s disease
     Dosage: 400 MILLIGRAM, EV 4 WEEKS
     Route: 058
     Dates: start: 20180920
  2. MOTRIN [Concomitant]
     Active Substance: IBUPROFEN
     Indication: Pyrexia
     Dosage: UNK UNK, AS NEEDED (PRN)

REACTIONS (14)
  - Crohn^s disease [Recovered/Resolved]
  - Gastroenteritis viral [Recovered/Resolved]
  - Fistula [Recovered/Resolved]
  - Gastrointestinal pain [Unknown]
  - Injection site pain [Unknown]
  - Injection site reaction [Recovered/Resolved]
  - Pyrexia [Unknown]
  - Influenza [Recovered/Resolved]
  - Oral herpes [Recovering/Resolving]
  - Nasal congestion [Not Recovered/Not Resolved]
  - Change of bowel habit [Unknown]
  - Abnormal faeces [Unknown]
  - Product storage error [Unknown]
  - Therapeutic product effect incomplete [Unknown]

NARRATIVE: CASE EVENT DATE: 20200629
